FAERS Safety Report 7053828-6 (Version None)
Quarter: 2010Q4

REPORT INFORMATION
  Report Type: 
  Country: None (occurrence: None)
  Receive Date: 20101020
  Receipt Date: 20101007
  Transmission Date: 20110411
  Serious: Yes (Other)
  Sender: FDA-Public Use
  Company Number: PHHY2010BR67524

PATIENT
  Sex: Male

DRUGS (1)
  1. FORASEQ [Suspect]

REACTIONS (4)
  - BEDRIDDEN [None]
  - CARDIAC DISORDER [None]
  - DYSPNOEA [None]
  - SKIN DISCOLOURATION [None]
